FAERS Safety Report 8855047 (Version 5)
Quarter: 2013Q2

REPORT INFORMATION
  Report Type: Report from Study
  Country: US (occurrence: US)
  Receive Date: 20121023
  Receipt Date: 20130605
  Transmission Date: 20140414
  Serious: Yes (Hospitalization)
  Sender: FDA-Public Use
  Company Number: US-ACTELION-A-US2012-73057

PATIENT
  Age: 73 Year
  Sex: Female

DRUGS (4)
  1. TRACLEER [Suspect]
     Indication: PULMONARY ARTERIAL HYPERTENSION
     Dosage: UNK
     Route: 048
  2. VENTAVIS [Suspect]
     Indication: PULMONARY ARTERIAL HYPERTENSION
     Dosage: 20 MCG/ML
     Route: 055
  3. SILDENAFIL [Concomitant]
     Indication: PULMONARY ARTERIAL HYPERTENSION
  4. COUMADIN [Concomitant]

REACTIONS (5)
  - Heart rate decreased [Unknown]
  - Cardiac flutter [Unknown]
  - Palpitations [Unknown]
  - Dyspnoea [Unknown]
  - Dizziness [Unknown]
